FAERS Safety Report 20908603 (Version 1)
Quarter: 2022Q2

REPORT INFORMATION
  Report Type: Spontaneous
  Country: IT (occurrence: IT)
  Receive Date: 20220603
  Receipt Date: 20220603
  Transmission Date: 20220720
  Serious: Yes (Other)
  Sender: FDA-Public Use
  Company Number: None

PATIENT
  Age: 70 Year
  Sex: Female
  Weight: 45 kg

DRUGS (4)
  1. CISPLATIN [Suspect]
     Active Substance: CISPLATIN
     Indication: Anal neoplasm
     Dosage: UNIT DOSE : 90 MG , DURATION : 21 DAYS , FREQUENCY TIME : 1 CYCLICAL , STRENGTH : 1 MG/ML , CISPLATI
     Route: 042
     Dates: start: 20220414, end: 20220505
  2. FLUOROURACIL [Concomitant]
     Active Substance: FLUOROURACIL
     Indication: Anal neoplasm
     Dosage: STRENGTH : 5 G / 100 ML , UNIT DOSE : 4000 MG , DURATION : 21 DAYS
     Route: 042
     Dates: start: 20220414, end: 20220505
  3. XANAX [Concomitant]
     Active Substance: ALPRAZOLAM
     Dosage: STRENGTH : 0.25 MG , UNIT DOSE : 0.25 MG
     Route: 048
  4. ZOLPIDEM TARTRATE [Concomitant]
     Active Substance: ZOLPIDEM TARTRATE
     Indication: Insomnia
     Dosage: UNIT DOSE : 20 GTT , STRENGTH : 10 MG/ML
     Route: 048
     Dates: start: 20220301

REACTIONS (7)
  - Flushing [Recovered/Resolved]
  - Urticaria [Recovered/Resolved]
  - Hypersensitivity [Recovered/Resolved]
  - Oxygen saturation decreased [Recovered/Resolved]
  - Bronchospasm [Recovered/Resolved]
  - Pruritus [Recovered/Resolved]
  - Flushing [Recovered/Resolved]

NARRATIVE: CASE EVENT DATE: 20220505
